FAERS Safety Report 7917403-0 (Version None)
Quarter: 2011Q4

REPORT INFORMATION
  Report Type: 
  Country: None (occurrence: None)
  Receive Date: 20111114
  Receipt Date: 20111027
  Transmission Date: 20120403
  Serious: Yes (Hospitalization)
  Sender: FDA-Public Use
  Company Number: MYCO20110017

PATIENT
  Age: 62 Year
  Sex: Male

DRUGS (3)
  1. CYCLOSPORINE [Concomitant]
  2. PREDNISOLONE [Concomitant]
  3. MYCOPHENOLATE MOFETIL [Suspect]
     Indication: IMMUNOSUPPRESSION
     Dosage: 2 GM, 1 IN 1 D, ORAL
     Route: 048
     Dates: start: 20000201, end: 20010101

REACTIONS (1)
  - BRONCHIECTASIS [None]
